FAERS Safety Report 6927482-5 (Version None)
Quarter: 2010Q3

REPORT INFORMATION
  Report Type: 
  Country: None (occurrence: None)
  Receive Date: 20100817
  Receipt Date: 20100809
  Transmission Date: 20110219
  Serious: Yes (Hospitalization)
  Sender: FDA-Public Use
  Company Number: GT-JNJFOC-20100804199

PATIENT
  Sex: Male

DRUGS (1)
  1. TRAMADOL HCL [Suspect]
     Indication: PRODUCT USED FOR UNKNOWN INDICATION
     Dosage: 1 OR 2 TABLET/ THRICE IN A DAY
     Route: 048

REACTIONS (1)
  - HAEMATEMESIS [None]
